FAERS Safety Report 25108540 (Version 1)
Quarter: 2025Q1

REPORT INFORMATION
  Report Type: Spontaneous
  Country: US (occurrence: US)
  Receive Date: 20250322
  Receipt Date: 20250322
  Transmission Date: 20250408
  Serious: Yes (Death, Life-Threatening, Hospitalization)
  Sender: AMGEN
  Company Number: US-AMGEN-USASP2025055452

PATIENT
  Age: 16 Year
  Sex: Female
  Weight: 26.8 kg

DRUGS (2)
  1. BLINCYTO [Suspect]
     Active Substance: BLINATUMOMAB
     Indication: B precursor type acute leukaemia
     Route: 065
     Dates: start: 20240417
  2. PONATINIB [Concomitant]
     Active Substance: PONATINIB

REACTIONS (4)
  - Multiple organ dysfunction syndrome [Fatal]
  - Septic shock [Fatal]
  - Human rhinovirus test positive [Unknown]
  - Enterovirus test positive [Unknown]

NARRATIVE: CASE EVENT DATE: 20240602
